FAERS Safety Report 11545241 (Version 1)
Quarter: 2015Q3

REPORT INFORMATION
  Report Type: Spontaneous
  Country: JP (occurrence: JP)
  Receive Date: 20150924
  Receipt Date: 20150924
  Transmission Date: 20151125
  Serious: Yes (Hospitalization)
  Sender: FDA-Public Use
  Company Number: JP-IPCA LABORATORIES LIMITED-IPC201509-000621

PATIENT
  Age: 69 Year
  Sex: Female

DRUGS (2)
  1. WARFARIN [Suspect]
     Active Substance: WARFARIN
     Indication: ANTICOAGULANT THERAPY
  2. CILOSTAZOL. [Concomitant]
     Active Substance: CILOSTAZOL

REACTIONS (2)
  - Anaemia [Recovering/Resolving]
  - Abdominal wall haematoma [Recovering/Resolving]
